FAERS Safety Report 22057845 (Version 2)
Quarter: 2024Q1

REPORT INFORMATION
  Report Type: Report from Study
  Country: US (occurrence: US)
  Receive Date: 20230303
  Receipt Date: 20240227
  Transmission Date: 20240410
  Serious: No
  Sender: FDA-Public Use
  Company Number: US-ORG100014127-2022001481

PATIENT
  Age: 27 Year
  Sex: Female

DRUGS (2)
  1. METOPIRONE [Suspect]
     Active Substance: METYRAPONE
     Indication: Pituitary-dependent Cushing^s syndrome
     Dates: start: 20221123
  2. METOPIRONE [Suspect]
     Active Substance: METYRAPONE
     Indication: Pituitary-dependent Cushing^s syndrome
     Dosage: 2 CAPSULES BY MOUTH EVERY MORNING, 2 CAPSULES AT NOON AND 2 CAPSULES AT EVENING.

REACTIONS (6)
  - Joint swelling [Recovered/Resolved]
  - Condition aggravated [Recovered/Resolved]
  - Fatigue [Not Recovered/Not Resolved]
  - Nausea [Not Recovered/Not Resolved]
  - Headache [Not Recovered/Not Resolved]
  - Off label use [Not Recovered/Not Resolved]

NARRATIVE: CASE EVENT DATE: 20221123
